FAERS Safety Report 21887212 (Version 1)
Quarter: 2023Q1

REPORT INFORMATION
  Report Type: Report from Study
  Country: US (occurrence: US)
  Receive Date: 20230119
  Receipt Date: 20230119
  Transmission Date: 20230418
  Serious: No
  Sender: FDA-Public Use
  Company Number: US-ABBVIE-4244359

PATIENT
  Sex: Male

DRUGS (1)
  1. HUMIRA [Suspect]
     Active Substance: ADALIMUMAB
     Indication: Rheumatoid arthritis
     Dosage: EVENTS LACK OF DRUG EFFECT, PAIN, SWELLING, MUSCLE FATIGUE, KNEE PAIN ONSET DATE: 2022
     Route: 058
     Dates: start: 20220624

REACTIONS (5)
  - Muscle fatigue [Unknown]
  - Drug ineffective [Not Recovered/Not Resolved]
  - Arthralgia [Unknown]
  - Swelling [Unknown]
  - Pain [Unknown]
